FAERS Safety Report 10113467 (Version 1)
Quarter: 2014Q2

REPORT INFORMATION
  Report Type: Spontaneous
  Country: US (occurrence: US)
  Receive Date: 20140425
  Receipt Date: 20140425
  Transmission Date: 20141212
  Serious: Yes (Life-Threatening, Hospitalization)
  Sender: FDA-Public Use
  Company Number: US-BAYER-2014-059507

PATIENT
  Age: 19 Year
  Sex: Female
  Weight: 85.71 kg

DRUGS (11)
  1. YAZ [Suspect]
     Indication: DYSMENORRHOEA
  2. YAZ [Suspect]
     Indication: CONTRACEPTION
  3. YASMIN [Suspect]
  4. TRETINOIN [Concomitant]
     Dosage: 0.05 %, UNK
  5. CEPHALEXIN [Concomitant]
     Dosage: 250 MG, UNK
  6. VI-Q-TUSS [Concomitant]
     Dosage: UNK
  7. TYLENOL [PARACETAMOL] [Concomitant]
  8. IBUPROFEN [Concomitant]
  9. FLEXERIL [Concomitant]
  10. TORADOL [Concomitant]
  11. DECADRON [Concomitant]

REACTIONS (1)
  - Pulmonary embolism [Recovered/Resolved]
